FAERS Safety Report 7626190-5 (Version None)
Quarter: 2011Q3

REPORT INFORMATION
  Report Type: 
  Country: None (occurrence: None)
  Receive Date: 20110721
  Receipt Date: 20110711
  Transmission Date: 20111222
  Serious: Yes (Other)
  Sender: FDA-Public Use
  Company Number: PHHY2011JP63793

PATIENT
  Age: 14 Year
  Sex: Male

DRUGS (1)
  1. ZADITEN [Suspect]
     Indication: ASTHMA
     Route: 048

REACTIONS (2)
  - CONVULSION [None]
  - FALL [None]
